FAERS Safety Report 16153138 (Version 1)
Quarter: 2019Q2

REPORT INFORMATION
  Report Type: Spontaneous
  Country: US (occurrence: US)
  Receive Date: 20190403
  Receipt Date: 20190403
  Transmission Date: 20190711
  Serious: No
  Sender: FDA-Public Use
  Company Number: US-MALLINCKRODT-T201901220

PATIENT
  Sex: Female

DRUGS (2)
  1. RESTORIL [Suspect]
     Active Substance: TEMAZEPAM
     Dosage: ONE-HALF CAPSULE FOR 14 DAYS
     Route: 065
     Dates: end: 20190202
  2. RESTORIL [Suspect]
     Active Substance: TEMAZEPAM
     Indication: INSOMNIA
     Dosage: 1/2 CAPSULE FOR 4 NIGHTS
     Route: 065

REACTIONS (4)
  - Withdrawal syndrome [Unknown]
  - Pain in extremity [Unknown]
  - Drug ineffective [Unknown]
  - Muscle tightness [Unknown]

NARRATIVE: CASE EVENT DATE: 20190117
